FAERS Safety Report 6318808-4 (Version None)
Quarter: 2009Q3

REPORT INFORMATION
  Report Type: 
  Country: None (occurrence: None)
  Receive Date: 20090821
  Receipt Date: 20090812
  Transmission Date: 20100115
  Serious: Yes (Life-Threatening, Hospitalization, Other)
  Sender: FDA-Public Use
  Company Number: DE-ABBOTT-09P-062-0590597-00

PATIENT
  Sex: Female
  Weight: 64 kg

DRUGS (13)
  1. HUMIRA [Suspect]
     Indication: RHEUMATOID ARTHRITIS
     Route: 058
     Dates: start: 20081001, end: 20090701
  2. METHOTREXATE [Suspect]
     Indication: RHEUMATOID ARTHRITIS
     Dates: end: 20090701
  3. LAXATIVE AGENT [Concomitant]
     Indication: FLATULENCE
     Dates: start: 20090801
  4. PREDNISONE [Concomitant]
     Indication: RHEUMATOID ARTHRITIS
  5. BELOC ZOK [Concomitant]
     Indication: HYPERTENSION
     Route: 048
  6. DELIX [Concomitant]
     Indication: HYPERTENSION
     Route: 048
  7. BONDIOL [Concomitant]
     Indication: DRUG USE FOR UNKNOWN INDICATION
  8. NEXIUM [Concomitant]
     Indication: DRUG USE FOR UNKNOWN INDICATION
  9. FOSAMAX [Concomitant]
     Indication: OSTEOPOROSIS
  10. VIANI [Concomitant]
     Indication: DRUG USE FOR UNKNOWN INDICATION
     Dosage: 50/250- 2 A DAY
  11. NAC DIAGNOSTIC REAGENT [Concomitant]
     Indication: DRUG USE FOR UNKNOWN INDICATION
  12. MELPERONE [Concomitant]
     Indication: DRUG USE FOR UNKNOWN INDICATION
     Route: 048
  13. NULYTELY [Concomitant]
     Indication: DRUG USE FOR UNKNOWN INDICATION

REACTIONS (10)
  - APHTHOUS STOMATITIS [None]
  - BONE MARROW FAILURE [None]
  - FLATULENCE [None]
  - HAEMATURIA [None]
  - MOUTH HAEMORRHAGE [None]
  - MUCOSAL INFLAMMATION [None]
  - PANCYTOPENIA [None]
  - PNEUMONIA [None]
  - PULMONARY EMBOLISM [None]
  - THROMBOCYTOSIS [None]
